FAERS Safety Report 6545057-7 (Version None)
Quarter: 2010Q1

REPORT INFORMATION
  Report Type: 
  Country: None (occurrence: None)
  Receive Date: 20100121
  Receipt Date: 20100118
  Transmission Date: 20100710
  Serious: Yes (Death)
  Sender: FDA-Public Use
  Company Number: B0628098A

PATIENT
  Age: 35 Year
  Sex: Male

DRUGS (6)
  1. KIVEXA [Suspect]
     Indication: HIV INFECTION
     Dosage: 1TAB PER DAY
     Route: 048
     Dates: start: 20060810, end: 20091003
  2. REYATAZ [Concomitant]
     Indication: HIV INFECTION
     Dosage: 300MG PER DAY
     Route: 048
     Dates: start: 20070820, end: 20091003
  3. NORVIR [Concomitant]
     Indication: HIV INFECTION
     Dosage: 100MG PER DAY
     Route: 048
     Dates: start: 20060509, end: 20091003
  4. SERONIL [Concomitant]
     Indication: DEPRESSION
     Dosage: 60MG PER DAY
     Route: 048
     Dates: start: 20050101, end: 20091003
  5. XANOR [Concomitant]
     Indication: ANXIETY
     Dosage: 1MG PER DAY
     Route: 048
     Dates: start: 20050101
  6. TENOX [Concomitant]
     Indication: INSOMNIA
     Dosage: 20MG PER DAY
     Route: 048
     Dates: start: 20050101, end: 20091003

REACTIONS (2)
  - DEATH [None]
  - HYPERLIPIDAEMIA [None]
